FAERS Safety Report 25451031 (Version 2)
Quarter: 2025Q2

REPORT INFORMATION
  Report Type: Spontaneous
  Country: DE (occurrence: DE)
  Receive Date: 20250618
  Receipt Date: 20250623
  Transmission Date: 20250716
  Serious: Yes (Hospitalization, Other)
  Sender: TORRENT PHARMA INC.
  Company Number: None

PATIENT
  Age: 82 Year
  Sex: Female

DRUGS (10)
  1. ATORVASTATIN [Suspect]
     Active Substance: ATORVASTATIN
     Indication: Lipids increased
     Dosage: FOR A LONG TIME - B.A.W. (UNTIL FURTHER NOTICE)
     Route: 048
  2. CANDESARTAN [Suspect]
     Active Substance: CANDESARTAN
     Indication: Drug therapy
     Dosage: FOR A LONG TIME - B.A.W. (UNTIL FURTHER NOTICE)
     Route: 048
  3. MIRTAZAPINE [Suspect]
     Active Substance: MIRTAZAPINE
     Indication: Product used for unknown indication
     Route: 048
     Dates: start: 2025, end: 20250302
  4. OLANZAPINE [Suspect]
     Active Substance: OLANZAPINE
     Indication: Product used for unknown indication
     Dosage: BERGINN: FOR A LONG TIME
     Route: 048
     Dates: end: 20250209
  5. HYDROXYCHLOROQUINE SULFATE [Suspect]
     Active Substance: HYDROXYCHLOROQUINE SULFATE
     Indication: Analgesic therapy
     Dosage: FOR A LONG TIME - B.A.W. (UNTIL FURTHER NOTICE)
     Route: 048
  6. ASPIRIN [Concomitant]
     Active Substance: ASPIRIN
     Indication: Analgesic therapy
     Dosage: FOR A LONG TIME - B.A.W. (UNTIL FURTHER NOTICE)
     Route: 048
  7. CHOLECALCIFEROL [Concomitant]
     Active Substance: CHOLECALCIFEROL
     Indication: Osteoporosis
     Dosage: FOR A LONG TIME - B.A.W. (UNTIL FURTHER NOTICE)
     Route: 048
  8. FOLIC ACID [Concomitant]
     Active Substance: FOLIC ACID
     Indication: Drug therapy
     Dosage: FOR A LONG TIME - B.A.W. (UNTIL FURTHER NOTICE) 5MG/WEEK (ON SATURDAYS)
     Route: 065
  9. METHOTREXATE [Concomitant]
     Active Substance: METHOTREXATE
     Indication: Drug therapy
     Dosage: FOR A LONG TIME - B.A.W. (UNTIL FURTHER NOTICE) 10MG/WEEK (ON FRIDAYS)
     Route: 065
  10. FLUTICASONE FUROATE\VILANTEROL TRIFENATATE [Concomitant]
     Active Substance: FLUTICASONE FUROATE\VILANTEROL TRIFENATATE
     Indication: Drug therapy
     Dosage: FOR A LONG TIME - B.A.W. (UNTIL FURTHER NOTICE)
     Route: 048

REACTIONS (6)
  - Fall [Recovered/Resolved]
  - Dizziness [Recovered/Resolved]
  - Lumbar vertebral fracture [Recovered/Resolved]
  - Pelvic fracture [Recovered/Resolved]
  - Hypotension [Recovered/Resolved]
  - Wheelchair user [Not Recovered/Not Resolved]

NARRATIVE: CASE EVENT DATE: 20250305
